FAERS Safety Report 4389055-0 (Version None)
Quarter: 2004Q2

REPORT INFORMATION
  Report Type: 
  Country: None (occurrence: None)
  Receive Date: 20040628
  Receipt Date: 20040615
  Transmission Date: 20050107
  Serious: Yes (Death)
  Sender: FDA-Public Use
  Company Number: 207292

PATIENT
  Age: 81 Year
  Sex: Male

DRUGS (1)
  1. ACTILYSE(ALTEPLASE) PWDR + SOLVENT, INFUSION SOLN [Suspect]
     Indication: CEREBROVASCULAR ACCIDENT
     Dosage: 50 MG, UNK, INTRAVENOUS
     Route: 042
     Dates: start: 20030717, end: 20030717

REACTIONS (2)
  - PANCREATITIS ACUTE [None]
  - SHOCK [None]
